FAERS Safety Report 10248221 (Version 5)
Quarter: 2015Q3

REPORT INFORMATION
  Report Type: Report from Study
  Country: CZ (occurrence: CZ)
  Receive Date: 20140620
  Receipt Date: 20150904
  Transmission Date: 20151125
  Serious: Yes (Hospitalization)
  Sender: FDA-Public Use
  Company Number: CZ-ROCHE-1421368

PATIENT
  Age: 60 Year
  Sex: Female

DRUGS (12)
  1. METHOTREXATE [Concomitant]
     Active Substance: METHOTREXATE
     Route: 048
     Dates: start: 20120724, end: 20120807
  2. IBUPROFEN. [Concomitant]
     Active Substance: IBUPROFEN
     Indication: RHEUMATOID ARTHRITIS
     Route: 048
     Dates: start: 2006
  3. LORISTA H [Concomitant]
     Indication: HYPERTENSION
     Route: 048
     Dates: start: 2008
  4. CLARITIN [Concomitant]
     Active Substance: LORATADINE
     Indication: SINUSITIS
     Route: 048
     Dates: start: 20140407, end: 20140413
  5. ACIDUM FOLICUM [Concomitant]
     Active Substance: FOLIC ACID
     Route: 048
     Dates: start: 20061110, end: 20121221
  6. METHOTREXATE [Concomitant]
     Active Substance: METHOTREXATE
     Route: 048
     Dates: start: 20120808, end: 20121221
  7. TOCILIZUMAB [Suspect]
     Active Substance: TOCILIZUMAB
     Indication: RHEUMATOID ARTHRITIS
     Dosage: LAST DOSE PRIOR TO SAE 09/JUN/2014
     Route: 042
     Dates: start: 20120613
  8. VIGANTOL [Concomitant]
     Indication: PROPHYLAXIS
     Route: 048
     Dates: start: 2011
  9. OFLOXIN [Concomitant]
     Indication: URINARY TRACT INFECTION
     Route: 048
     Dates: start: 20140305, end: 20140316
  10. KLACID (CZECH REPUBLIC) [Concomitant]
     Indication: SINUSITIS
     Route: 048
     Dates: start: 20140407, end: 20140413
  11. METHOTREXATE [Concomitant]
     Active Substance: METHOTREXATE
     Indication: RHEUMATOID ARTHRITIS
     Route: 048
     Dates: start: 20080618, end: 20120723
  12. PYRIDOXIN [Concomitant]
     Active Substance: PYRIDOXINE
     Indication: PROPHYLAXIS
     Route: 048
     Dates: start: 20120127, end: 20121026

REACTIONS (1)
  - Cerebrovascular accident [Recovered/Resolved]

NARRATIVE: CASE EVENT DATE: 20140614
